FAERS Safety Report 7736612-7 (Version None)
Quarter: 2011Q3

REPORT INFORMATION
  Report Type: 
  Country: None (occurrence: None)
  Receive Date: 20110902
  Receipt Date: 20110830
  Transmission Date: 20111222
  Serious: Yes (Hospitalization)
  Sender: FDA-Public Use
  Company Number: NAP-11-10

PATIENT
  Age: 79 Year
  Sex: Female

DRUGS (3)
  1. NAPROXEN [Suspect]
     Indication: OSTEOARTHRITIS
     Dosage: 275MG/DAY
  2. DICLOFENAC SODIUM [Concomitant]
  3. PIROXICAM [Concomitant]

REACTIONS (9)
  - ILEAL ULCER [None]
  - INTESTINAL STENOSIS [None]
  - ULCER HAEMORRHAGE [None]
  - INTESTINAL DIAPHRAGM DISEASE [None]
  - GASTROINTESTINAL EROSION [None]
  - ABDOMINAL PAIN [None]
  - HAEMOGLOBIN DECREASED [None]
  - JEJUNAL ULCER [None]
  - HAEMATOCHEZIA [None]
